FAERS Safety Report 5308721-3 (Version None)
Quarter: 2007Q2

REPORT INFORMATION
  Report Type: 
  Country: None (occurrence: None)
  Receive Date: 20070426
  Receipt Date: 20070420
  Transmission Date: 20071010
  Serious: Yes (Hospitalization)
  Sender: FDA-Public Use
  Company Number: SE-GLAXOSMITHKLINE-B0468107A

PATIENT
  Sex: Female

DRUGS (1)
  1. KIVEXA [Suspect]
     Dosage: 7TAB PER DAY
     Dates: start: 20070418

REACTIONS (3)
  - CONFUSIONAL STATE [None]
  - OVERDOSE [None]
  - VOMITING [None]
